FAERS Safety Report 7037092-X (Version None)
Quarter: 2010Q4

REPORT INFORMATION
  Report Type: 
  Country: None (occurrence: None)
  Receive Date: 20101011
  Receipt Date: 20100929
  Transmission Date: 20110411
  Serious: Yes (Hospitalization)
  Sender: FDA-Public Use
  Company Number: PHBS1999JP02461

PATIENT
  Sex: Male
  Weight: 68.6 kg

DRUGS (5)
  1. SANDIMMUNE [Suspect]
     Indication: PSORIASIS
     Dosage: 150 MG/DAY
     Route: 048
     Dates: start: 19921021, end: 19990415
  2. MYSER [Concomitant]
     Dates: start: 19921001
  3. DERMOVATE [Concomitant]
  4. BONALFA [Concomitant]
  5. AZELASTINE HCL [Concomitant]

REACTIONS (17)
  - ALANINE AMINOTRANSFERASE INCREASED [None]
  - ASPARTATE AMINOTRANSFERASE INCREASED [None]
  - C-REACTIVE PROTEIN INCREASED [None]
  - CYTOMEGALOVIRUS HEPATITIS [None]
  - CYTOMEGALOVIRUS TEST POSITIVE [None]
  - EPSTEIN-BARR VIRUS INFECTION [None]
  - FATIGUE [None]
  - HEPATIC FUNCTION ABNORMAL [None]
  - HEPATOMEGALY [None]
  - INFECTION [None]
  - LEUKOCYTOSIS [None]
  - LYMPHOCYTE MORPHOLOGY ABNORMAL [None]
  - MALAISE [None]
  - PRODUCTIVE COUGH [None]
  - PUSTULAR PSORIASIS [None]
  - PYREXIA [None]
  - RASH PUSTULAR [None]
